FAERS Safety Report 6422997-0 (Version None)
Quarter: 2009Q4

REPORT INFORMATION
  Report Type: 
  Country: None (occurrence: None)
  Receive Date: 20091102
  Receipt Date: 20091027
  Transmission Date: 20100525
  Serious: Yes (Death)
  Sender: FDA-Public Use
  Company Number: JP-BAYER-200913749BYL

PATIENT
  Age: 90 Year
  Sex: Female
  Weight: 41 kg

DRUGS (4)
  1. MAGNEVIST [Suspect]
     Indication: ARTERIOSCLEROSIS OBLITERANS
     Dosage: 0.2ML/KG( DOUBLE DOSE),INFUSION RATE:4ML/S,INFUSION SITE:ANTECUBITAL FOSSA
     Route: 042
     Dates: start: 20090918, end: 20090918
  2. ANPLAG [Concomitant]
     Indication: DRUG USE FOR UNKNOWN INDICATION
     Dosage: TOTAL DAILY DOSE: 600 MG
     Route: 048
  3. PLETAL [Concomitant]
     Indication: DRUG USE FOR UNKNOWN INDICATION
     Dosage: TOTAL DAILY DOSE: 600 MG
     Route: 048
  4. DORNER [Concomitant]
     Indication: DRUG USE FOR UNKNOWN INDICATION
     Dosage: TOTAL DAILY DOSE: 120 ?G
     Route: 048

REACTIONS (1)
  - SEPSIS [None]
